FAERS Safety Report 6206820-5 (Version None)
Quarter: 2009Q2

REPORT INFORMATION
  Report Type: 
  Country: None (occurrence: None)
  Receive Date: 20090528
  Receipt Date: 20090521
  Transmission Date: 20091009
  Serious: Yes (Hospitalization, Other)
  Sender: FDA-Public Use
  Company Number: US-ELI_LILLY_AND_COMPANY-US200905004490

PATIENT
  Sex: Female

DRUGS (3)
  1. FORTEO [Suspect]
     Dates: start: 20090201
  2. WELLBUTRIN XL [Concomitant]
     Indication: DEPRESSION
     Dosage: 150 MG, UNK
  3. LIPITOR [Concomitant]
     Indication: BLOOD CHOLESTEROL INCREASED
     Dosage: 40 MG, UNK

REACTIONS (5)
  - APHASIA [None]
  - ASTHENIA [None]
  - CONVULSION [None]
  - HEADACHE [None]
  - SYNCOPE [None]
